FAERS Safety Report 6589940-5 (Version None)
Quarter: 2010Q1

REPORT INFORMATION
  Report Type: 
  Country: None (occurrence: None)
  Receive Date: 20100212
  Receipt Date: 20100201
  Transmission Date: 20100710
  Serious: Yes (Death)
  Sender: FDA-Public Use
  Company Number: 430003M10USA

PATIENT

DRUGS (10)
  1. NOVANTRONE [Suspect]
     Indication: PROSTATE CANCER
     Dosage: 24 MG, 1 IN 21 DAYS, INTRAVENOUS
     Route: 042
     Dates: start: 20090825, end: 20090915
  2. AMG 102 (INVESTIGATIONAL DRUG) [Suspect]
     Indication: NEOPLASM MALIGNANT
     Dosage: 24 MG, 1 IN 21 DAYS, INTRAVENOUS
     Route: 042
     Dates: start: 20090825, end: 20090915
  3. LORAZEPAM [Concomitant]
  4. INDOMETHACIN [Concomitant]
  5. LEUPRORELIN ACETATE (LEUPRORELIN ACETATE) [Concomitant]
  6. LISINOPRIL [Concomitant]
  7. DYAZIDE [Concomitant]
  8. VERAPAMIL [Concomitant]
  9. OMEPRAZOLE [Concomitant]
  10. DIMETICONE, ACTIVATED (DIMETICONE, ACTIVATED) [Concomitant]

REACTIONS (36)
  - ACUTE MYOCARDIAL INFARCTION [None]
  - ALANINE AMINOTRANSFERASE INCREASED [None]
  - AORTIC CALCIFICATION [None]
  - ASPARTATE AMINOTRANSFERASE INCREASED [None]
  - BLOOD PH DECREASED [None]
  - BRADYCARDIA [None]
  - BUNDLE BRANCH BLOCK RIGHT [None]
  - CARDIAC ARREST [None]
  - CARDIOMYOPATHY [None]
  - CARDIOTOXICITY [None]
  - DISEASE COMPLICATION [None]
  - DIZZINESS [None]
  - ELECTROCARDIOGRAM QRS COMPLEX PROLONGED [None]
  - ELECTROLYTE IMBALANCE [None]
  - EXTRADURAL HAEMATOMA [None]
  - FALL [None]
  - HAEMOGLOBIN DECREASED [None]
  - HEAD INJURY [None]
  - METASTASES TO BLADDER [None]
  - METASTASES TO LARGE INTESTINE [None]
  - METASTASES TO LIVER [None]
  - METASTASES TO PANCREAS [None]
  - METASTASES TO PERITONEUM [None]
  - METASTASES TO SMALL INTESTINE [None]
  - PLATELET COUNT DECREASED [None]
  - PLEURAL EFFUSION [None]
  - PULSE ABSENT [None]
  - RECTAL CANCER METASTATIC [None]
  - RESPIRATORY FAILURE [None]
  - RIB FRACTURE [None]
  - SPLEEN CONGESTION [None]
  - TACHYCARDIA [None]
  - THYROID NEOPLASM [None]
  - TREATMENT NONCOMPLIANCE [None]
  - UNRESPONSIVE TO STIMULI [None]
  - VENTRICULAR FIBRILLATION [None]
